FAERS Safety Report 6756265-4 (Version None)
Quarter: 2010Q2

REPORT INFORMATION
  Report Type: 
  Country: None (occurrence: None)
  Receive Date: 20100604
  Receipt Date: 20100601
  Transmission Date: 20101027
  Serious: Yes (Death, Hospitalization)
  Sender: FDA-Public Use
  Company Number: BR-ABBOTT-10P-020-0647913-00

PATIENT
  Age: 35 Day

DRUGS (1)
  1. SEVOFLURANE [Suspect]
     Indication: INDUCTION OF ANAESTHESIA

REACTIONS (3)
  - ABDOMINAL DISTENSION [None]
  - DYSPNOEA [None]
  - PULMONARY HAEMORRHAGE [None]
